FAERS Safety Report 5787999-6 (Version None)
Quarter: 2008Q2

REPORT INFORMATION
  Report Type: 
  Country: None (occurrence: None)
  Receive Date: 20080625
  Receipt Date: 20080617
  Transmission Date: 20081010
  Serious: Yes (Death, Life-Threatening, Other)
  Sender: FDA-Public Use
  Company Number: GB-JNJFOC-20080105482

PATIENT
  Sex: Female
  Weight: 71 kg

DRUGS (6)
  1. REMICADE [Suspect]
     Indication: RHEUMATOID ARTHRITIS
     Route: 042
  2. METHOTREXATE [Concomitant]
  3. AMLODIPINE [Concomitant]
  4. CO-DYDRAMOL [Concomitant]
  5. FOSAMAX [Concomitant]
  6. PLAQUENIL [Concomitant]

REACTIONS (1)
  - PNEUMONIA [None]
